FAERS Safety Report 20058262 (Version 3)
Quarter: 2022Q1

REPORT INFORMATION
  Report Type: Spontaneous
  Country: US (occurrence: US)
  Receive Date: 20211111
  Receipt Date: 20220225
  Transmission Date: 20220423
  Serious: Yes (Other)
  Sender: FDA-Public Use
  Company Number: US-PFIZER INC-202101530908

PATIENT
  Age: 70 Year
  Sex: Female
  Weight: 56.689 kg

DRUGS (7)
  1. SOMATROPIN [Suspect]
     Active Substance: SOMATROPIN
     Indication: Pituitary tumour
     Dosage: 6 MG, 1X/DAY (ONCE A DAY IN THE EVENING)
     Dates: start: 2012
  2. SOMATROPIN [Suspect]
     Active Substance: SOMATROPIN
     Indication: Growth hormone deficiency
  3. GABAPENTIN [Concomitant]
     Active Substance: GABAPENTIN
     Dosage: 300 MG, 3X/DAY (900 MG PER DAY, 3 TIMES A DAY)
  4. VALTREX [Concomitant]
     Active Substance: VALACYCLOVIR HYDROCHLORIDE
     Dosage: 1 G, 4X/DAY (1 GM, 4 TIMES A DAY)
  5. ARMOUR THYROID [Concomitant]
     Active Substance: THYROID, PORCINE
     Dosage: 90 MG, 1X/DAY (^90 MG^ (FURTHER NOT CLARIFIED) EVERY DAY)
  6. DEXAMETHASONE [Concomitant]
     Active Substance: DEXAMETHASONE
  7. XTAMPZA ER [Concomitant]
     Active Substance: OXYCODONE
     Dosage: 18 MG, 3X/DAY (^18 MG^ (FURTHER NOT CLARIFIED) 3 TIMES A DAY)

REACTIONS (4)
  - Suicidal ideation [Unknown]
  - Drug dependence [Unknown]
  - Rheumatoid arthritis [Unknown]
  - Illness [Unknown]

NARRATIVE: CASE EVENT DATE: 20220101
